FAERS Safety Report 19797949 (Version 1)
Quarter: 2021Q3

REPORT INFORMATION
  Report Type: Spontaneous
  Country: CA (occurrence: CA)
  Receive Date: 20210907
  Receipt Date: 20210907
  Transmission Date: 20211014
  Serious: Yes (Other)
  Sender: FDA-Public Use
  Company Number: CA-ACCORD-237414

PATIENT
  Age: 55 Year
  Sex: Female

DRUGS (4)
  1. MYCOPHENOLIC ACID. [Suspect]
     Active Substance: MYCOPHENOLIC ACID
     Indication: VASCULITIS
  2. ACETYLSALICYLIC ACID [Concomitant]
     Active Substance: ASPIRIN
  3. PREDNISONE. [Concomitant]
     Active Substance: PREDNISONE
  4. ERGOCALCIFEROL. [Concomitant]
     Active Substance: ERGOCALCIFEROL

REACTIONS (13)
  - Benign soft tissue neoplasm [Recovered/Resolved]
  - Hypertension [Recovered/Resolved]
  - Nerve injury [Recovered/Resolved]
  - Angiomyxoma [Recovered/Resolved]
  - Balance disorder [Recovered/Resolved]
  - Polyarteritis nodosa [Recovered/Resolved]
  - Scleritis [Recovered/Resolved]
  - Skin ulcer [Recovered/Resolved]
  - Vasculitis [Recovered/Resolved]
  - Deafness neurosensory [Recovered/Resolved]
  - Unevaluable event [Unknown]
  - Arthritis [Recovered/Resolved]
  - Toxicity to various agents [Recovered/Resolved]
